FAERS Safety Report 9476090 (Version 1)
Quarter: 2013Q3

REPORT INFORMATION
  Report Type: Spontaneous
  Country: NZ (occurrence: None)
  Receive Date: 20130821
  Receipt Date: 20130821
  Transmission Date: 20140515
  Serious: Yes (Other)
  Sender: FDA-Public Use
  Company Number: SYM-2103-08557

PATIENT
  Sex: Female

DRUGS (4)
  1. DILTIAZEM [Suspect]
     Indication: PRODUCT USED FOR UNKNOWN INDICATION
     Route: 048
  2. BUDESONIDE/FORMOTEROL(BUDESONIDEW/FORMETEROL FUMARATE) (FORMOTEROL FUMARATE, BUDESONIDE) [Concomitant]
  3. OMEPRAZOLE (OMEPRAZOLE) (OMPEORAZOLE) [Concomitant]
  4. SALBUTAMOL (SALBUTAMOL) (SALBUTAMOL) [Concomitant]

REACTIONS (5)
  - Hepatocellular injury [None]
  - Pyrexia [None]
  - Hyperbilirubinaemia [None]
  - Hepatitis [None]
  - Diarrhoea [None]
